FAERS Safety Report 5396826-0 (Version None)
Quarter: 2007Q3

REPORT INFORMATION
  Report Type: 
  Country: None (occurrence: None)
  Receive Date: 20070725
  Receipt Date: 20061006
  Transmission Date: 20080115
  Serious: No
  Sender: FDA-Public Use
  Company Number: US-AMGEN-KDL196479

PATIENT
  Sex: Male

DRUGS (13)
  1. PROCRIT [Suspect]
     Indication: RENAL FAILURE CHRONIC
     Route: 058
     Dates: start: 20060403
  2. ASPIRIN [Concomitant]
     Route: 048
     Dates: start: 20060403
  3. CLONIDINE [Concomitant]
     Dates: start: 20060403
  4. COREG [Concomitant]
     Route: 048
     Dates: start: 20060403
  5. METAMUCIL [Concomitant]
     Dates: start: 20060407
  6. IMDUR [Concomitant]
     Route: 048
     Dates: start: 20060419
  7. LIPITOR [Concomitant]
     Route: 048
  8. METOCLOPRAMIDE [Concomitant]
     Dates: start: 20060609
  9. NIFEREX [Concomitant]
     Route: 048
     Dates: start: 20060403
  10. NITRO-DUR [Concomitant]
     Dates: start: 20060612
  11. NORVASC [Concomitant]
     Route: 048
     Dates: start: 20060403
  12. PHENERGAN HCL [Concomitant]
  13. PROMETHAZINE [Concomitant]

REACTIONS (5)
  - BLOOD IRON DECREASED [None]
  - DRUG INEFFECTIVE [None]
  - PLATELET MORPHOLOGY ABNORMAL [None]
  - RED BLOOD CELL MORPHOLOGY ABNORMAL [None]
  - TRANSFERRIN SATURATION DECREASED [None]
